FAERS Safety Report 13251346 (Version 4)
Quarter: 2019Q2

REPORT INFORMATION
  Report Type: Spontaneous
  Country: JP (occurrence: JP)
  Receive Date: 20170220
  Receipt Date: 20190418
  Transmission Date: 20190711
  Serious: Yes (Hospitalization, Other)
  Sender: FDA-Public Use
  Company Number: JP-CONCORDIA PHARMACEUTICALS INC.-GSH201702-001206

PATIENT
  Age: 26 Year
  Sex: Female

DRUGS (1)
  1. PLAQUENIL [Suspect]
     Active Substance: HYDROXYCHLOROQUINE SULFATE
     Indication: SYSTEMIC LUPUS ERYTHEMATOSUS
     Dosage: DAILY DOSE: 300 (UNITS NOT PROVIDED)
     Route: 048
     Dates: start: 20170130

REACTIONS (2)
  - Lupus enteritis [Recovered/Resolved]
  - Meningitis [Unknown]

NARRATIVE: CASE EVENT DATE: 2017
